FAERS Safety Report 24573049 (Version 3)
Quarter: 2024Q4

REPORT INFORMATION
  Report Type: Report from Study
  Country: CN (occurrence: CN)
  Receive Date: 20241101
  Receipt Date: 20241204
  Transmission Date: 20250115
  Serious: Yes (Other)
  Sender: NOVO NORDISK
  Company Number: CN-NOVOPROD-1306952

PATIENT
  Sex: Male

DRUGS (3)
  1. NOVOEIGHT [Suspect]
     Active Substance: ANTIHEMOPHILIC FACTOR, HUMAN RECOMBINANT
     Dosage: 2000 IU, QD
     Route: 042
     Dates: start: 20241122
  2. NOVOEIGHT [Suspect]
     Active Substance: ANTIHEMOPHILIC FACTOR, HUMAN RECOMBINANT
     Indication: Factor VIII deficiency
     Dosage: 3000 IU, QD
     Route: 042
  3. NOVOEIGHT [Suspect]
     Active Substance: ANTIHEMOPHILIC FACTOR, HUMAN RECOMBINANT
     Dosage: 2000 IU, BID
     Route: 042

REACTIONS (4)
  - Haemarthrosis [Unknown]
  - Haemarthrosis [Unknown]
  - Haematoma muscle [Unknown]
  - Muscle haemorrhage [Unknown]
